FAERS Safety Report 13673339 (Version 5)
Quarter: 2017Q3

REPORT INFORMATION
  Report Type: Spontaneous
  Country: US (occurrence: US)
  Receive Date: 20170621
  Receipt Date: 20170911
  Transmission Date: 20171127
  Serious: Yes (Life-Threatening, Hospitalization, Other)
  Sender: FDA-Public Use
  Company Number: US-PFIZER INC-2017266554

PATIENT
  Age: 15 Year
  Sex: Female

DRUGS (3)
  1. ASPIRIN (E.C.) [Suspect]
     Active Substance: ASPIRIN
     Dosage: 25 DF, SINGLE
  2. IBUPROFEN. [Suspect]
     Active Substance: IBUPROFEN
     Dosage: 2000 MG, SINGLE
  3. BISMUTH SALICYLATE [Suspect]
     Active Substance: BISMUTH TRISALICYLATE
     Dosage: A FEW STOMACH PILLS

REACTIONS (8)
  - Intentional overdose [Recovered/Resolved]
  - Suicide attempt [Recovered/Resolved]
  - Tinnitus [Recovering/Resolving]
  - Toxicity to various agents [Recovering/Resolving]
  - Bezoar [Recovering/Resolving]
  - Abdominal pain [Recovering/Resolving]
  - Nausea [Recovering/Resolving]
  - Tachypnoea [Recovering/Resolving]
